FAERS Safety Report 16238154 (Version 6)
Quarter: 2020Q1

REPORT INFORMATION
  Report Type: Spontaneous
  Country: US (occurrence: US)
  Receive Date: 20190425
  Receipt Date: 20200218
  Transmission Date: 20200409
  Serious: Yes (Hospitalization, Other)
  Sender: FDA-Public Use
  Company Number: US-PFIZER INC-2019171892

PATIENT
  Age: 85 Year
  Sex: Female

DRUGS (1)
  1. XELJANZ XR [Suspect]
     Active Substance: TOFACITINIB CITRATE
     Dosage: 11 MG, UNK
     Dates: start: 201901

REACTIONS (9)
  - Decreased immune responsiveness [Unknown]
  - Limb discomfort [Unknown]
  - Hordeolum [Unknown]
  - Nasopharyngitis [Unknown]
  - Back pain [Unknown]
  - Pollakiuria [Unknown]
  - Malaise [Unknown]
  - Gait disturbance [Unknown]
  - Rhinorrhoea [Recovered/Resolved]

NARRATIVE: CASE EVENT DATE: 2019
